FAERS Safety Report 6058744-4 (Version None)
Quarter: 2009Q1

REPORT INFORMATION
  Report Type: 
  Country: None (occurrence: None)
  Receive Date: 20090130
  Receipt Date: 20090119
  Transmission Date: 20090719
  Serious: Yes (Life-Threatening)
  Sender: FDA-Public Use
  Company Number: JP-PFIZER INC-2009150205

PATIENT

DRUGS (7)
  1. DALACIN [Suspect]
     Dosage: 600 MG, 1X/DAY
     Dates: start: 20081222, end: 20081222
  2. METILON [Suspect]
     Dosage: 1 MG, 1X/DAY
     Route: 042
     Dates: start: 20081222, end: 20081222
  3. DASEN [Concomitant]
     Dosage: UNK
     Dates: start: 20081218, end: 20081222
  4. MEDICON [Concomitant]
     Dosage: UNK
  5. MUCODYNE [Concomitant]
     Dosage: UNK
     Dates: start: 20081218, end: 20081222
  6. FLOMOX [Concomitant]
     Dosage: UNK
     Dates: start: 20081218, end: 20081222
  7. CALONAL [Concomitant]
     Dosage: UNK

REACTIONS (1)
  - ANAPHYLACTIC SHOCK [None]
